FAERS Safety Report 19460105 (Version 2)
Quarter: 2021Q2

REPORT INFORMATION
  Report Type: Spontaneous
  Country: US (occurrence: US)
  Receive Date: 20210625
  Receipt Date: 20210629
  Transmission Date: 20210717
  Serious: No
  Sender: FDA-Public Use
  Company Number: US-SA-2021SA207737

PATIENT
  Sex: Female

DRUGS (2)
  1. DUPIXENT [Suspect]
     Active Substance: DUPILUMAB
     Indication: IDIOPATHIC URTICARIA
     Route: 058
  2. CHANTIX [Concomitant]
     Active Substance: VARENICLINE TARTRATE

REACTIONS (2)
  - Off label use [Unknown]
  - Drug ineffective [Unknown]
